FAERS Safety Report 20803012 (Version 1)
Quarter: 2022Q2

REPORT INFORMATION
  Report Type: Report from Study
  Country: IT (occurrence: IT)
  Receive Date: 20220509
  Receipt Date: 20220509
  Transmission Date: 20220721
  Serious: Yes (Other)
  Sender: FDA-Public Use
  Company Number: None

PATIENT
  Age: 73 Year
  Sex: Female
  Weight: 59 kg

DRUGS (1)
  1. CARBOPLATIN [Suspect]
     Active Substance: CARBOPLATIN
     Indication: Serous cystadenocarcinoma ovary
     Dosage: 348 MG, CYCLIC
     Route: 042
     Dates: start: 20220210, end: 20220331

REACTIONS (6)
  - Erythema [Recovering/Resolving]
  - Pruritus [Recovering/Resolving]
  - Throat tightness [Recovering/Resolving]
  - Tongue oedema [Recovering/Resolving]
  - Ocular hyperaemia [Recovering/Resolving]
  - Lip oedema [Recovering/Resolving]

NARRATIVE: CASE EVENT DATE: 20220331
